FAERS Safety Report 11760354 (Version 1)
Quarter: 2015Q4

REPORT INFORMATION
  Report Type: Spontaneous
  Country: GR (occurrence: GR)
  Receive Date: 20151120
  Receipt Date: 20151120
  Transmission Date: 20160304
  Serious: Yes (Other)
  Sender: FDA-Public Use
  Company Number: GR-ASTRAZENECA-2015SF03826

PATIENT
  Age: 82 Year
  Sex: Female

DRUGS (21)
  1. FULVESTRANT [Suspect]
     Active Substance: FULVESTRANT
     Indication: BONE LESION
     Route: 030
     Dates: start: 201211
  2. EPIRUBICIN [Suspect]
     Active Substance: EPIRUBICIN
     Indication: BREAST CANCER
     Dosage: 4 CYCLES (90 MG/M2,1 IN 14 D)
     Route: 065
  3. VITAMIN D3 [Concomitant]
     Active Substance: CHOLECALCIFEROL
  4. MIRTAZAPINE. [Concomitant]
     Active Substance: MIRTAZAPINE
  5. PACLITAXEL. [Suspect]
     Active Substance: PACLITAXEL
     Indication: BREAST CANCER
     Dosage: 12 CYCLES (90 MG/M2,1 IN 1 WK)
     Route: 065
  6. ENDOXAN [Suspect]
     Active Substance: CYCLOPHOSPHAMIDE
     Indication: BREAST CANCER
     Dosage: 4 CYCLES (600 M, BAXTER
     Route: 065
  7. FLUOXETINE [Concomitant]
     Active Substance: FLUOXETINE HYDROCHLORIDE
  8. PALBOCICLIB [Concomitant]
     Active Substance: PALBOCICLIB
  9. FULVESTRANT [Suspect]
     Active Substance: FULVESTRANT
     Indication: BREAST CANCER METASTATIC
     Route: 030
     Dates: start: 201211
  10. DENOSUMAB [Suspect]
     Active Substance: DENOSUMAB
     Indication: MALIGNANT NEOPLASM PROGRESSION
     Route: 065
  11. QUINAPRIL [Concomitant]
     Active Substance: QUINAPRIL\QUINAPRIL HYDROCHLORIDE
  12. CYCLOPHOSPHAMIDE. [Concomitant]
     Active Substance: CYCLOPHOSPHAMIDE
  13. DENOSUMAB [Suspect]
     Active Substance: DENOSUMAB
     Indication: HEPATIC LESION
     Route: 065
  14. CALCIUM [Concomitant]
     Active Substance: CALCIUM
  15. CAPECITABINE. [Suspect]
     Active Substance: CAPECITABINE
     Indication: HEPATIC LESION
     Route: 065
     Dates: end: 201503
  16. LETROZOLE. [Suspect]
     Active Substance: LETROZOLE
     Indication: BREAST CANCER
     Dosage: FOR ABOUT THREE YERAS
     Route: 065
  17. NAVELBINE [Suspect]
     Active Substance: VINORELBINE TARTRATE
     Indication: MALIGNANT NEOPLASM PROGRESSION
     Dosage: DAY 1, DAY 8, DAY 15 (50 MG/M2,3 IN 28 D)
     Route: 065
  18. ZOLEDRONIC ACID [Suspect]
     Active Substance: ZOLEDRONIC ACID
     Indication: BONE LESION
     Route: 065
     Dates: start: 201211, end: 201312
  19. TAMOXIFEN [Suspect]
     Active Substance: TAMOXIFEN
     Indication: BREAST CANCER METASTATIC
     Route: 048
     Dates: start: 201503, end: 201506
  20. TAMOXIFEN [Suspect]
     Active Substance: TAMOXIFEN
     Indication: MALIGNANT NEOPLASM PROGRESSION
     Route: 048
     Dates: start: 201503, end: 201506
  21. DOXORUBICIN [Suspect]
     Active Substance: DOXORUBICIN
     Indication: HEPATIC LESION
     Dosage: 6 CYCLES  (1 IN 1 CYCLICAL)
     Route: 065
     Dates: start: 201305

REACTIONS (2)
  - Malignant neoplasm progression [Unknown]
  - Skin toxicity [Unknown]
